FAERS Safety Report 8049985 (Version 2)
Quarter: 2013Q3

REPORT INFORMATION
  Report Type: Report from Study
  Country: MX (occurrence: MX)
  Receive Date: 20110722
  Receipt Date: 20130812
  Transmission Date: 20140515
  Serious: Yes (Hospitalization, Other)
  Sender: FDA-Public Use
  Company Number: PHHY2011MX61653

PATIENT
  Age: 96 Year
  Sex: Female

DRUGS (4)
  1. DIOVAN [Suspect]
     Indication: HYPERTENSION
     Dosage: 0.5 DF, PER DAY
     Dates: start: 20070208, end: 20110228
  2. DIOVAN [Suspect]
     Dosage: 1 DF, PER DAY
     Dates: start: 20110228
  3. PENTOXIFYLLINE [Concomitant]
     Dosage: UNK UKN, UNK
  4. AEROFLUX [Concomitant]
     Dosage: UNK UKN, UNK

REACTIONS (7)
  - Pulmonary embolism [Not Recovered/Not Resolved]
  - Asphyxia [Not Recovered/Not Resolved]
  - Dizziness [Not Recovered/Not Resolved]
  - Agitation [Not Recovered/Not Resolved]
  - Pneumonia [Not Recovered/Not Resolved]
  - Blood pressure increased [Not Recovered/Not Resolved]
  - Wrong technique in drug usage process [Unknown]
